FAERS Safety Report 7494753-6 (Version None)
Quarter: 2011Q2

REPORT INFORMATION
  Report Type: 
  Country: None (occurrence: None)
  Receive Date: 20110520
  Receipt Date: 20110511
  Transmission Date: 20111010
  Serious: Yes (Other)
  Sender: FDA-Public Use
  Company Number: FR-ASTRAZENECA-2011SE28899

PATIENT
  Age: 80 Year
  Sex: Female

DRUGS (3)
  1. FENOFIBRATE [Concomitant]
  2. ZESTORETIC [Concomitant]
     Route: 048
  3. IRESSA [Suspect]
     Indication: METASTATIC BRONCHIAL CARCINOMA
     Route: 048
     Dates: start: 20110104, end: 20110303

REACTIONS (1)
  - CYTOLYTIC HEPATITIS [None]
